FAERS Safety Report 12306108 (Version 3)
Quarter: 2016Q3

REPORT INFORMATION
  Report Type: Spontaneous
  Country: US (occurrence: US)
  Receive Date: 20160426
  Receipt Date: 20160817
  Transmission Date: 20161109
  Serious: Yes (Hospitalization)
  Sender: FDA-Public Use
  Company Number: US-DSJP-DSU-2016-102438

PATIENT

DRUGS (4)
  1. SAVAYSA [Suspect]
     Active Substance: EDOXABAN TOSYLATE
     Indication: ATRIAL FIBRILLATION
     Dosage: UNK MG, UNK
  2. MYRBETRIQ [Suspect]
     Active Substance: MIRABEGRON
     Indication: NOCTURIA
     Dosage: UNK, QD IN MORNING
  3. TOVIAZ [Concomitant]
     Active Substance: FESOTERODINE FUMARATE
     Indication: PRODUCT USED FOR UNKNOWN INDICATION
     Dosage: UNK
  4. XTANDI [Suspect]
     Active Substance: ENZALUTAMIDE
     Indication: PROSTATE CANCER STAGE IV
     Dosage: 160 UNK, UNK
     Dates: start: 201501

REACTIONS (15)
  - Sleep disorder [Unknown]
  - Urinary tract infection [Unknown]
  - Muscular weakness [Recovering/Resolving]
  - Arthralgia [Unknown]
  - Hip arthroplasty [Unknown]
  - Blood pressure abnormal [Unknown]
  - Prostatic specific antigen increased [Unknown]
  - Fatigue [Unknown]
  - Insomnia [Unknown]
  - Nocturia [Unknown]
  - Drug interaction [Unknown]
  - Sneezing [Unknown]
  - Skin disorder [Unknown]
  - Back pain [Recovering/Resolving]
  - Hypersensitivity [Recovered/Resolved]

NARRATIVE: CASE EVENT DATE: 201603
